FAERS Safety Report 23905768 (Version 1)
Quarter: 2024Q2

REPORT INFORMATION
  Report Type: Spontaneous
  Country: FR (occurrence: FR)
  Receive Date: 20240527
  Receipt Date: 20240527
  Transmission Date: 20240716
  Serious: Yes (Hospitalization)
  Sender: FDA-Public Use
  Company Number: None

PATIENT
  Age: 63 Year
  Sex: Female
  Weight: 118 kg

DRUGS (1)
  1. KISQALI [Suspect]
     Active Substance: RIBOCICLIB
     Indication: Breast cancer
     Dosage: 1 DOSAGE FORM
     Route: 048
     Dates: start: 202305, end: 202403

REACTIONS (1)
  - Skin ulcer [Recovering/Resolving]

NARRATIVE: CASE EVENT DATE: 20230601
